FAERS Safety Report 10745800 (Version 1)
Quarter: 2015Q1

REPORT INFORMATION
  Report Type: Spontaneous
  Country: US (occurrence: US)
  Receive Date: 20150128
  Receipt Date: 20150128
  Transmission Date: 20150721
  Serious: Yes (Hospitalization)
  Sender: FDA-Public Use
  Company Number: US-TEVA-537055USA

PATIENT
  Sex: Female

DRUGS (1)
  1. TREANDA [Suspect]
     Active Substance: BENDAMUSTINE HYDROCHLORIDE
     Indication: B-CELL LYMPHOMA
     Dosage: DOSE AND FREQUENCY NOT PROVIDED
     Route: 065

REACTIONS (1)
  - Rash [Unknown]
